FAERS Safety Report 10145639 (Version 1)
Quarter: 2014Q2

REPORT INFORMATION
  Report Type: Report from Study
  Country: BR (occurrence: BR)
  Receive Date: 20140501
  Receipt Date: 20140501
  Transmission Date: 20141212
  Serious: Yes (Other)
  Sender: FDA-Public Use
  Company Number: PHHY2014BR050275

PATIENT
  Age: 51 Year
  Sex: Female

DRUGS (34)
  1. MYFORTIC [Suspect]
     Indication: IMMUNOSUPPRESSION
     Dosage: 360 MG, TID, 1 MONTHS
  2. MYFORTIC [Suspect]
     Dosage: 720 MG, BID, 4MONTHS
  3. MYFORTIC [Suspect]
     Dosage: 720 MG, BID, 6 MONTHS
  4. MYFORTIC [Suspect]
     Dosage: 720 MG, BID, 12 MONTHS
  5. MYFORTIC [Suspect]
     Dosage: 720 MG, BID, 24 MONTHS
  6. MYFORTIC [Suspect]
     Dosage: 720 MG, BID, 32 MONTHS
  7. MYFORTIC [Suspect]
     Dosage: 720 MG, BID, 48 MONTHS
  8. MYFORTIC [Suspect]
     Dosage: 720 MG, BID, 60 MONTHS
  9. MYFORTIC [Suspect]
     Dosage: 720 MG, BID, 65 MONTHS
  10. CERTICAN [Suspect]
     Indication: RENAL TRANSPLANT
     Dosage: 1.0 , BID, 4 MONTHS
  11. CERTICAN [Suspect]
     Dosage: 1.5 , BID, 6 MONTHS
  12. CERTICAN [Suspect]
     Dosage: 1.5 , BID, 12 MONTHS
  13. CERTICAN [Suspect]
     Dosage: 1.5 , BID, 24 MONTHS
  14. CERTICAN [Suspect]
     Dosage: 1.5 , BID, 32 MONTHS
  15. CERTICAN [Suspect]
     Dosage: 1.5 AND 1.0, 48 MONTHS
  16. CERTICAN [Suspect]
     Dosage: 1.0 , BID 60 MONTHS
  17. CERTICAN [Suspect]
     Dosage: 0.75 UKN, BID, 65 MONTHS
  18. THYMOGLOBULIN [Concomitant]
     Dosage: 6 MG/KG, UNK
  19. TACROLIMUS [Concomitant]
     Indication: IMMUNOSUPPRESSION
     Dosage: 5 MG, 0.19 MG/KG/DAY.
  20. TACROLIMUS [Concomitant]
     Dosage: 5 MG, BID, 1 MONTHS
  21. PREDNISONE [Concomitant]
     Indication: IMMUNOSUPPRESSION
     Dosage: 40 MG, (0.7 MG/KG/DAY)
  22. PREDNISONE [Concomitant]
     Dosage: 5 MG, ONE MONTH
  23. PREDNISONE [Concomitant]
     Dosage: 5 MG, 4 MONTH
  24. PREDNISONE [Concomitant]
     Dosage: 5 MG, 6 MONTH
  25. PREDNISONE [Concomitant]
     Dosage: 5 MG, 12 MONTH
  26. PREDNISONE [Concomitant]
     Dosage: 5 MG, 24 MONTH
  27. PREDNISONE [Concomitant]
     Dosage: 5 MG, 32 MONTH
  28. PREDNISONE [Concomitant]
     Dosage: 2.5 MG, 48 MONTHS
  29. PREDNISONE [Concomitant]
     Dosage: 2.5 MG, 60 MONTHS
  30. PREDNISONE [Concomitant]
     Dosage: 2.5 MG, 68 MONTHS
  31. GLUC [Concomitant]
     Dosage: 127 1MONTHS
  32. LOSARTAN [Concomitant]
     Dosage: 50 UKN, BID, 1 MONTH
  33. METFORMIN [Concomitant]
     Dosage: 850 UKN, BID, 1 MONTH
  34. BENZAFIBRATO [Concomitant]
     Dosage: 200 UKN, UNK

REACTIONS (31)
  - Iliac vein occlusion [Unknown]
  - Vein disorder [Unknown]
  - Ear haemorrhage [Unknown]
  - Puncture site haemorrhage [Unknown]
  - Hypovolaemic shock [Unknown]
  - Compartment syndrome [Unknown]
  - Dehydration [Unknown]
  - Blood sodium decreased [Unknown]
  - Hypotonia [Unknown]
  - Haemorrhage [Unknown]
  - Deep vein thrombosis [Unknown]
  - Pain in extremity [Unknown]
  - Peripheral swelling [Unknown]
  - Oedema peripheral [Unknown]
  - Tenderness [Unknown]
  - Vascular resistance systemic [Unknown]
  - Erythema [Unknown]
  - Feeling hot [Unknown]
  - Blood pressure systolic increased [Unknown]
  - Anaemia [Unknown]
  - Urinary tract infection [Unknown]
  - Blood creatinine increased [Unknown]
  - Blood urea increased [Unknown]
  - Urine output decreased [Unknown]
  - Calcium ionised increased [Unknown]
  - Respiratory rate increased [Unknown]
  - Protein urine present [Unknown]
  - Blood triglycerides increased [Unknown]
  - Heart rate increased [Unknown]
  - Blood cholesterol increased [Unknown]
  - Platelet count decreased [Unknown]
